FAERS Safety Report 4869347-9 (Version None)
Quarter: 2005Q4

REPORT INFORMATION
  Report Type: 
  Country: None (occurrence: None)
  Receive Date: 20051230
  Receipt Date: 20051201
  Transmission Date: 20060501
  Serious: Yes (Life-Threatening, Hospitalization)
  Sender: FDA-Public Use
  Company Number: PHBS2005JP18011

PATIENT
  Age: 67 Year
  Sex: Male

DRUGS (6)
  1. AUGMENTIN '125' [Concomitant]
     Dosage: UNK, UNK
     Route: 048
     Dates: start: 20050430, end: 20050503
  2. TIZANIDINE HCL [Concomitant]
     Dosage: UNK, UNK
     Route: 048
     Dates: start: 20050430, end: 20050503
  3. NORVASC [Concomitant]
     Dosage: 5 MG/DAY
     Route: 048
     Dates: end: 20050510
  4. LOXOT [Concomitant]
     Indication: ANALGESIC THERAPY
     Dosage: UNK, UNK
     Route: 048
     Dates: start: 20050430, end: 20050503
  5. DIOVAN [Suspect]
     Indication: HYPERTENSION
     Dosage: 0.5 DF, QD
     Route: 048
     Dates: start: 20050401, end: 20050510
  6. NICORANDIL [Concomitant]
     Indication: ANGINA PECTORIS
     Dosage: 2 DF/DAY
     Route: 048
     Dates: end: 20050510

REACTIONS (15)
  - ALANINE AMINOTRANSFERASE INCREASED [None]
  - BLOOD GLUCOSE INCREASED [None]
  - BLOOD UREA INCREASED [None]
  - C-REACTIVE PROTEIN INCREASED [None]
  - DRUG ERUPTION [None]
  - DRUG HYPERSENSITIVITY [None]
  - GAMMA-GLUTAMYLTRANSFERASE INCREASED [None]
  - HENOCH-SCHONLEIN PURPURA [None]
  - HEPATIC FUNCTION ABNORMAL [None]
  - HYPERGLYCAEMIA [None]
  - NASOPHARYNGITIS [None]
  - PYREXIA [None]
  - RASH PRURITIC [None]
  - RENAL FUNCTION TEST ABNORMAL [None]
  - WHITE BLOOD CELL COUNT INCREASED [None]
